FAERS Safety Report 9206998 (Version 2)
Quarter: 2013Q2

REPORT INFORMATION
  Report Type: Spontaneous
  Country: US (occurrence: US)
  Receive Date: 20130403
  Receipt Date: 20130513
  Transmission Date: 20140414
  Serious: No
  Sender: FDA-Public Use
  Company Number: US-B.I. PHARMACEUTICALS,INC./RIDGEFIELD-2013-BI-08488BP

PATIENT
  Sex: Female
  Weight: 42.18 kg

DRUGS (8)
  1. COMBIVENT [Suspect]
     Indication: CHRONIC OBSTRUCTIVE PULMONARY DISEASE
     Route: 055
     Dates: start: 2008, end: 201304
  2. CLOPIDOGREL [Concomitant]
     Dosage: 75 MG
     Route: 048
  3. AMLODIPINE [Concomitant]
     Dosage: 5 MG
     Route: 048
  4. NIFEDICAL [Concomitant]
     Route: 048
  5. NORVASC [Concomitant]
     Indication: HYPERTENSION
     Dosage: 5 MG
  6. PROCARDIA [Concomitant]
     Indication: HYPERTENSION
     Dosage: 60 MG
  7. ADVAIR [Concomitant]
     Indication: CHRONIC OBSTRUCTIVE PULMONARY DISEASE
     Dates: start: 201304
  8. VIT D [Concomitant]
     Indication: VITAMIN D DEFICIENCY

REACTIONS (4)
  - Visual impairment [Not Recovered/Not Resolved]
  - Blood potassium decreased [Recovered/Resolved]
  - Blood pressure abnormal [Recovered/Resolved]
  - Vision blurred [Not Recovered/Not Resolved]
